FAERS Safety Report 7937684-7 (Version None)
Quarter: 2011Q4

REPORT INFORMATION
  Report Type: 
  Country: None (occurrence: None)
  Receive Date: 20111123
  Receipt Date: 20111115
  Transmission Date: 20120403
  Serious: Yes (Other)
  Sender: FDA-Public Use
  Company Number: PHHY2011CA097866

PATIENT
  Sex: Female

DRUGS (14)
  1. COTAZYM [Concomitant]
  2. NOVORAPID [Concomitant]
  3. VENTOLIN [Concomitant]
  4. PULMOZYME [Concomitant]
  5. NEXIUM [Concomitant]
  6. TOBI [Concomitant]
  7. URSO FALK [Concomitant]
  8. SALINE [Concomitant]
  9. TOBI [Suspect]
     Indication: PSEUDOMONAS INFECTION
     Dosage: 112 MG X 30 DAYS
     Dates: start: 20110627
  10. TOBI [Suspect]
     Dosage: 3 DF, UNK
     Dates: end: 20110707
  11. MATERNA [Concomitant]
  12. SYMBICORT [Concomitant]
  13. FERROUS GLUCONATE [Concomitant]
  14. FOLIC ACID [Concomitant]

REACTIONS (5)
  - CYSTIC FIBROSIS [None]
  - CHEST DISCOMFORT [None]
  - INFECTIVE PULMONARY EXACERBATION OF CYSTIC FIBROSIS [None]
  - DRUG INTOLERANCE [None]
  - CONDITION AGGRAVATED [None]
